FAERS Safety Report 7984202-3 (Version None)
Quarter: 2011Q4

REPORT INFORMATION
  Report Type: 
  Country: None (occurrence: None)
  Receive Date: 20111216
  Receipt Date: 20111206
  Transmission Date: 20120403
  Serious: Yes (Other)
  Sender: FDA-Public Use
  Company Number: US-BAYER-2011-056028

PATIENT
  Age: 36 Year
  Sex: Female
  Weight: 107 kg

DRUGS (5)
  1. METFORMIN HCL [Concomitant]
     Dosage: UNK
     Route: 048
     Dates: start: 20000101
  2. SYNTHROID [Concomitant]
     Dosage: UNK
     Route: 048
     Dates: start: 20050101, end: 20090101
  3. YASMIN [Suspect]
     Indication: CONTRACEPTION
     Dosage: UNK
     Dates: start: 20051101, end: 20060501
  4. TRIAMCINOLONE [Concomitant]
     Dosage: UNK
     Dates: start: 20060413
  5. AMOXICILLIN [Concomitant]
     Dosage: UNK
     Dates: start: 20060413

REACTIONS (8)
  - HEADACHE [None]
  - PAIN [None]
  - PARAESTHESIA [None]
  - INJURY [None]
  - EMOTIONAL DISTRESS [None]
  - CEREBROVASCULAR ACCIDENT [None]
  - ANXIETY [None]
  - VISUAL IMPAIRMENT [None]
